FAERS Safety Report 12367076 (Version 1)
Quarter: 2016Q2

REPORT INFORMATION
  Report Type: Spontaneous
  Country: GB (occurrence: GB)
  Receive Date: 20160513
  Receipt Date: 20160513
  Transmission Date: 20160815
  Serious: Yes (Other)
  Sender: FDA-Public Use
  Company Number: GB-HETERO LABS LTD-1052118

PATIENT
  Age: 49 Year
  Sex: Female

DRUGS (3)
  1. VALGANCICLOVIR. [Suspect]
     Active Substance: VALGANCICLOVIR
     Indication: PRODUCT USED FOR UNKNOWN INDICATION
  2. MYFENAX [Concomitant]
     Active Substance: MYCOPHENOLATE MOFETIL
     Route: 065
  3. ADOPORT [Concomitant]
     Active Substance: TACROLIMUS
     Route: 065

REACTIONS (1)
  - Thrombosis [Unknown]
